FAERS Safety Report 7524398-0 (Version None)
Quarter: 2011Q2

REPORT INFORMATION
  Report Type: 
  Country: None (occurrence: None)
  Receive Date: 20110601
  Receipt Date: 20110601
  Transmission Date: 20111010
  Serious: Yes (Other)
  Sender: FDA-Public Use
  Company Number: None

PATIENT
  Age: 30 Year
  Sex: Female
  Weight: 65.7716 kg

DRUGS (2)
  1. MELOXICAM [Suspect]
     Indication: MYALGIA
     Dosage: 15MG 1 PER DAY PO
     Route: 048
     Dates: start: 20110509, end: 20110525
  2. MELOXICAM [Suspect]
     Indication: ARTHRALGIA
     Dosage: 15MG 1 PER DAY PO
     Route: 048
     Dates: start: 20110509, end: 20110525

REACTIONS (10)
  - OEDEMA PERIPHERAL [None]
  - DYSPEPSIA [None]
  - CHEST PAIN [None]
  - ARTHRALGIA [None]
  - SWELLING [None]
  - CHEST DISCOMFORT [None]
  - CHILLS [None]
  - PYREXIA [None]
  - HEART RATE DECREASED [None]
  - FATIGUE [None]
